FAERS Safety Report 16797429 (Version 1)
Quarter: 2019Q3

REPORT INFORMATION
  Report Type: Spontaneous
  Country: CN (occurrence: CN)
  Receive Date: 20190912
  Receipt Date: 20190912
  Transmission Date: 20191005
  Serious: Yes (Other)
  Sender: FDA-Public Use
  Company Number: CN-BAXTER-2019BAX017663

PATIENT
  Age: 46 Year
  Sex: Female
  Weight: 54.5 kg

DRUGS (4)
  1. AISU [Suspect]
     Active Substance: DOCETAXEL
     Indication: INVASIVE BREAST CARCINOMA
     Dosage: AISU + SODIUM CHLORIDE
     Route: 041
     Dates: start: 20190712, end: 20190712
  2. ENDOXAN [Suspect]
     Active Substance: CYCLOPHOSPHAMIDE
     Indication: INVASIVE BREAST CARCINOMA
     Dosage: ENDOXAN + SODIUM CHLORIDE
     Route: 041
     Dates: start: 20190712, end: 20190712
  3. 0.9% SODIUM CHLORIDE INJECTION [Suspect]
     Active Substance: SODIUM CHLORIDE
     Indication: MEDICATION DILUTION
     Dosage: ENDOXAN + SODIUM CHLORIDE
     Route: 041
     Dates: start: 20190712, end: 20190712
  4. 0.9% SODIUM CHLORIDE INJECTION [Suspect]
     Active Substance: SODIUM CHLORIDE
     Dosage: AISU + SODIUM CHLORIDE
     Route: 041
     Dates: start: 20190712, end: 20190712

REACTIONS (1)
  - Hepatic function abnormal [Recovered/Resolved]

NARRATIVE: CASE EVENT DATE: 20190801
